FAERS Safety Report 21229477 (Version 1)
Quarter: 2022Q3

REPORT INFORMATION
  Report Type: 
  Country: None (occurrence: None)
  Receive Date: 20220818
  Receipt Date: 20220818
  Transmission Date: 20221027
  Serious: No
  Sender: FDA-Public Use
  Company Number: None

PATIENT

DRUGS (1)
  1. LACTULOSE [Suspect]
     Active Substance: LACTULOSE

REACTIONS (1)
  - Drug ineffective [Unknown]
